FAERS Safety Report 11822608 (Version 1)
Quarter: 2015Q4

REPORT INFORMATION
  Report Type: Spontaneous
  Country: US (occurrence: US)
  Receive Date: 20151210
  Receipt Date: 20151210
  Transmission Date: 20160305
  Serious: No
  Sender: FDA-Public Use
  Company Number: US-JNJFOC-20150603857

PATIENT
  Age: 85 Year
  Sex: Female

DRUGS (19)
  1. ATENOLOL. [Concomitant]
     Active Substance: ATENOLOL
  2. VITAMIN C [Concomitant]
     Active Substance: ASCORBIC ACID
  3. IMBRUVICA [Suspect]
     Active Substance: IBRUTINIB
     Indication: CHRONIC LYMPHOCYTIC LEUKAEMIA
     Route: 048
     Dates: start: 20140508
  4. PRANDIN [Concomitant]
     Active Substance: REPAGLINIDE
  5. K TAB [Concomitant]
  6. CHROMIUM PICOLINATE [Concomitant]
     Active Substance: CHROMIUM PICOLINATE
  7. INSULIN [Concomitant]
     Active Substance: INSULIN NOS
  8. FAMOTIDINE. [Concomitant]
     Active Substance: FAMOTIDINE
  9. AMLODIPINE [Concomitant]
     Active Substance: AMLODIPINE BESYLATE
  10. UBIQUINOL [Concomitant]
     Active Substance: UBIQUINOL
  11. LISINOPRIL. [Concomitant]
     Active Substance: LISINOPRIL
  12. IRON [Concomitant]
     Active Substance: IRON
  13. BABY ASPIRIN [Concomitant]
     Active Substance: ASPIRIN
  14. OMEGA 3 FISH OIL [Concomitant]
     Active Substance: FISH OIL\OMEGA-3 FATTY ACIDS
  15. PEPCID [Concomitant]
     Active Substance: FAMOTIDINE
  16. PRAVACHOL [Concomitant]
     Active Substance: PRAVASTATIN SODIUM
  17. ALLOPURINOL. [Concomitant]
     Active Substance: ALLOPURINOL
  18. CELEXA [Concomitant]
     Active Substance: CITALOPRAM HYDROBROMIDE
  19. TURMERIC [Concomitant]
     Active Substance: TURMERIC

REACTIONS (2)
  - Disorientation [Not Recovered/Not Resolved]
  - Tremor [Not Recovered/Not Resolved]

NARRATIVE: CASE EVENT DATE: 20150514
